FAERS Safety Report 16428850 (Version 5)
Quarter: 2019Q4

REPORT INFORMATION
  Report Type: Spontaneous
  Country: US (occurrence: US)
  Receive Date: 20190613
  Receipt Date: 20191015
  Transmission Date: 20200122
  Serious: Yes (Congenital Anomaly, Other)
  Sender: FDA-Public Use
  Company Number: PHEH2019US025082

PATIENT
  Sex: Male

DRUGS (1)
  1. ZOFRAN ODT [Suspect]
     Active Substance: ONDANSETRON HYDROCHLORIDE
     Indication: FOETAL EXPOSURE DURING PREGNANCY
     Dosage: MOTHER DOSE: UNK, PRN
     Route: 064

REACTIONS (89)
  - Tracheomalacia [Unknown]
  - Atelectasis neonatal [Unknown]
  - Dysphagia [Unknown]
  - Rhinitis allergic [Unknown]
  - Speech disorder developmental [Unknown]
  - Musculoskeletal stiffness [Unknown]
  - Vocal cord paralysis [Unknown]
  - Laryngeal oedema [Unknown]
  - Bronchomalacia [Unknown]
  - Wheezing [Unknown]
  - Impetigo [Unknown]
  - Rhinitis [Unknown]
  - Dyspnoea [Unknown]
  - Hyperglycaemia [Unknown]
  - Right atrial dilatation [Unknown]
  - Cough [Unknown]
  - Constipation [Unknown]
  - Otitis media acute [Unknown]
  - Lymphadenopathy [Unknown]
  - Dyslexia [Unknown]
  - Molluscum contagiosum [Unknown]
  - Arthropod bite [Unknown]
  - Ear infection [Unknown]
  - Pollakiuria [Unknown]
  - Prepuce redundant [Unknown]
  - Left-to-right cardiac shunt [Unknown]
  - Aortic valve incompetence [Unknown]
  - Dermatitis diaper [Unknown]
  - Eczema [Unknown]
  - Abdominal pain [Unknown]
  - Ear pain [Unknown]
  - Tonsillar hypertrophy [Unknown]
  - Palpitations [Unknown]
  - Transposition of the great vessels [Unknown]
  - Bronchiolitis [Unknown]
  - Foetal exposure during pregnancy [Unknown]
  - Conjunctivitis [Unknown]
  - Dysuria [Unknown]
  - Rhinorrhoea [Unknown]
  - Rash [Unknown]
  - Skin lesion [Unknown]
  - Vomiting [Unknown]
  - Headache [Unknown]
  - Acute sinusitis [Unknown]
  - Epistaxis [Unknown]
  - Dermatitis [Unknown]
  - Developmental delay [Unknown]
  - Sleep disorder [Unknown]
  - Atrial septal defect [Unknown]
  - Gross motor delay [Unknown]
  - Cyanosis neonatal [Unknown]
  - Mitral valve incompetence [Unknown]
  - Neonatal respiratory failure [Unknown]
  - Eating disorder [Unknown]
  - Viral infection [Unknown]
  - Pharyngitis streptococcal [Unknown]
  - Feeding disorder [Unknown]
  - Oropharyngeal pain [Unknown]
  - Diarrhoea [Unknown]
  - Petechiae [Unknown]
  - Attention deficit/hyperactivity disorder [Unknown]
  - Gastrooesophageal reflux disease [Unknown]
  - Vocal cord cyst [Unknown]
  - Bronchial hyperreactivity [Unknown]
  - Patent ductus arteriosus [Unknown]
  - Phimosis [Unknown]
  - Seizure [Unknown]
  - Pneumonia [Unknown]
  - Renal failure [Unknown]
  - Limb injury [Unknown]
  - Salivary gland mucocoele [Unknown]
  - Lymphadenitis [Unknown]
  - Cardiomegaly [Unknown]
  - Laryngomalacia [Unknown]
  - Pulmonary valve stenosis [Unknown]
  - Adrenal insufficiency neonatal [Unknown]
  - Weight gain poor [Unknown]
  - Pyrexia [Unknown]
  - Bronchitis [Unknown]
  - Nasal congestion [Unknown]
  - Asthma [Unknown]
  - Upper respiratory tract infection [Unknown]
  - Pain in extremity [Unknown]
  - Gait disturbance [Unknown]
  - Penis disorder [Unknown]
  - Pharyngeal exudate [Unknown]
  - Tachycardia [Unknown]
  - Cardiac murmur [Unknown]
  - Chest pain [Unknown]
